FAERS Safety Report 5066477-6 (Version None)
Quarter: 2006Q3

REPORT INFORMATION
  Report Type: 
  Country: None (occurrence: None)
  Receive Date: 20060728
  Receipt Date: 20060710
  Transmission Date: 20061208
  Serious: Yes (Hospitalization)
  Sender: FDA-Public Use
  Company Number: 200614704BWH

PATIENT
  Age: 50 Year
  Sex: Male
  Weight: 54.4316 kg

DRUGS (2)
  1. NEXAVAR [Suspect]
     Indication: METASTATIC RENAL CELL CARCINOMA
     Dosage: ORAL; SEE IMAGE
     Route: 048
     Dates: start: 20060519, end: 20060528
  2. NEXAVAR [Suspect]
     Indication: METASTATIC RENAL CELL CARCINOMA
     Dosage: ORAL; SEE IMAGE
     Route: 048
     Dates: start: 20060528

REACTIONS (6)
  - BLISTER [None]
  - DIARRHOEA [None]
  - GANGRENE [None]
  - PERIANAL ABSCESS [None]
  - UNEVALUABLE EVENT [None]
  - VOMITING [None]
